FAERS Safety Report 4506806-2 (Version None)
Quarter: 2004Q4

REPORT INFORMATION
  Report Type: 
  Country: None (occurrence: None)
  Receive Date: 20041117
  Receipt Date: 20041108
  Transmission Date: 20050328
  Serious: Yes (Death, Hospitalization)
  Sender: FDA-Public Use
  Company Number: 163-20785-04100323

PATIENT
  Age: 67 Year
  Sex: Female
  Weight: 88.905 kg

DRUGS (14)
  1. THALOMID [Suspect]
     Indication: MULTIPLE MYELOMA
     Dosage: 200 MG, DAILY, ORAL
     Route: 048
     Dates: start: 20040719, end: 20040910
  2. ATIVAN [Suspect]
  3. ANXIOLYTIC (ANXIOLYTICS) [Suspect]
  4. NOVOLOG INSULIN (INSULIN ASPART) [Concomitant]
  5. LANTUS [Concomitant]
  6. PREVACID [Concomitant]
  7. ATENOLOL [Concomitant]
  8. IMDUR [Concomitant]
  9. ROXANOL (MORPHINE SULFATE) [Concomitant]
  10. DECADRON [Concomitant]
  11. BACTRIM DOUBLE STRENGTH (BACTRIM) [Concomitant]
  12. LASIX [Concomitant]
  13. COUMADIN [Concomitant]
  14. PROCRIT [Concomitant]

REACTIONS (28)
  - ASTHENIA [None]
  - BLOOD PRESSURE DIASTOLIC DECREASED [None]
  - BLOOD PRESSURE SYSTOLIC INCREASED [None]
  - COAGULOPATHY [None]
  - DYSPNOEA [None]
  - EPISTAXIS [None]
  - FAILURE TO THRIVE [None]
  - HAEMOLYTIC ANAEMIA [None]
  - HAEMORRHAGE [None]
  - HYPERCALCAEMIA [None]
  - HYPERGLYCAEMIA [None]
  - INCISION SITE COMPLICATION [None]
  - MALIGNANT NEOPLASM PROGRESSION [None]
  - MARKEDLY REDUCED DIETARY INTAKE [None]
  - MENTAL STATUS CHANGES [None]
  - METASTATIC NEOPLASM [None]
  - OEDEMA PERIPHERAL [None]
  - PAIN IN EXTREMITY [None]
  - PERFORMANCE STATUS DECREASED [None]
  - PLATELET COUNT DECREASED [None]
  - POST PROCEDURAL COMPLICATION [None]
  - SEPSIS [None]
  - SKIN INFECTION [None]
  - SPLENIC NEOPLASM MALIGNANCY UNSPECIFIED [None]
  - THROMBOTIC THROMBOCYTOPENIC PURPURA [None]
  - URINARY TRACT INFECTION [None]
  - WOUND INFECTION [None]
  - WOUND SECRETION [None]
